FAERS Safety Report 7465896-8 (Version None)
Quarter: 2011Q2

REPORT INFORMATION
  Report Type: 
  Country: None (occurrence: None)
  Receive Date: 20110509
  Receipt Date: 20100414
  Transmission Date: 20111010
  Serious: No
  Sender: FDA-Public Use
  Company Number: US-ALEXION-A201000248

PATIENT
  Sex: Female

DRUGS (5)
  1. SOLIRIS [Suspect]
     Dosage: 900 MG, Q2WK
     Dates: start: 20090831, end: 20091028
  2. SOLIRIS [Suspect]
     Dosage: 900 MG, Q2W
     Route: 042
     Dates: start: 20100301
  3. SOLIRIS [Suspect]
     Indication: PAROXYSMAL NOCTURNAL HAEMOGLOBINURIA
     Dosage: UNK
     Route: 042
     Dates: end: 20090601
  4. SOLIRIS [Suspect]
     Dosage: 600 MG, QWK
     Dates: start: 20090803, end: 20090801
  5. COUMADIN [Concomitant]
     Indication: ANTICOAGULANT THERAPY
     Dosage: UNK
     Route: 048
     Dates: start: 20100301

REACTIONS (5)
  - CYSTITIS [None]
  - HAEMOPTYSIS [None]
  - INTERNATIONAL NORMALISED RATIO INCREASED [None]
  - EPISTAXIS [None]
  - PAIN [None]
